FAERS Safety Report 25795811 (Version 2)
Quarter: 2025Q4

REPORT INFORMATION
  Report Type: Report from Study
  Country: US (occurrence: US)
  Receive Date: 20250912
  Receipt Date: 20251006
  Transmission Date: 20260117
  Serious: Yes (Hospitalization)
  Sender: AMGEN
  Company Number: US-AMGEN-USASP2025179077

PATIENT
  Age: 8 Year
  Sex: Female

DRUGS (7)
  1. PROCYSBI [Suspect]
     Active Substance: CYSTEAMINE BITARTRATE
     Indication: Cystinosis
     Dosage: UNK
     Route: 065
     Dates: start: 20240820
  2. PROCYSBI [Suspect]
     Active Substance: CYSTEAMINE BITARTRATE
     Dosage: 600 MILLIGRAM, BID
     Route: 065
     Dates: start: 202410
  3. PROCYSBI [Suspect]
     Active Substance: CYSTEAMINE BITARTRATE
     Dosage: 700 MILLIGRAM, BID
     Route: 065
  4. PROCYSBI [Suspect]
     Active Substance: CYSTEAMINE BITARTRATE
     Dosage: 800 MILLIGRAM, BID
     Route: 065
  5. PROCYSBI [Suspect]
     Active Substance: CYSTEAMINE BITARTRATE
     Dosage: 900 MILLIGRAM, BID
     Route: 065
  6. PROCYSBI [Suspect]
     Active Substance: CYSTEAMINE BITARTRATE
     Dosage: 1000 MILLIGRAM, BID (3 300MG PACKETS, ONE 75MG CAPSULE, AND ONE 25MG CAPSULE TWICE A DAY)
     Route: 065
     Dates: start: 2025
  7. PROCYSBI [Suspect]
     Active Substance: CYSTEAMINE BITARTRATE
     Dosage: 1200 MILLIGRAM, BID
     Route: 065
     Dates: start: 202504

REACTIONS (2)
  - Medical device removal [Unknown]
  - Vomiting [Unknown]

NARRATIVE: CASE EVENT DATE: 20250903
